FAERS Safety Report 10019690 (Version 1)
Quarter: 2014Q1

REPORT INFORMATION
  Report Type: Spontaneous
  Country: KR (occurrence: KR)
  Receive Date: 20140318
  Receipt Date: 20140318
  Transmission Date: 20141002
  Serious: Yes (Hospitalization, Other)
  Sender: FDA-Public Use
  Company Number: PHHY2014KR030038

PATIENT
  Age: 60 Year
  Sex: Male

DRUGS (1)
  1. PARACETAMOL [Suspect]
     Indication: UPPER RESPIRATORY TRACT INFECTION

REACTIONS (18)
  - Toxic epidermal necrolysis [Unknown]
  - Rash erythematous [Unknown]
  - Rash generalised [Unknown]
  - Blister [Unknown]
  - Skin lesion [Recovering/Resolving]
  - Pyrexia [Unknown]
  - Skin exfoliation [Unknown]
  - Stomatitis [Unknown]
  - Eye disorder [Unknown]
  - Tenderness [Unknown]
  - Malaise [Unknown]
  - Stevens-Johnson syndrome [Unknown]
  - White blood cell count decreased [Unknown]
  - Blood phosphorus decreased [Unknown]
  - Blood sodium decreased [Unknown]
  - Blood potassium decreased [Unknown]
  - Blood calcium decreased [Unknown]
  - Blood uric acid decreased [Unknown]
